FAERS Safety Report 7301652-9 (Version None)
Quarter: 2011Q1

REPORT INFORMATION
  Report Type: 
  Country: None (occurrence: None)
  Receive Date: 20110218
  Receipt Date: 20110207
  Transmission Date: 20110831
  Serious: Yes (Hospitalization, Other)
  Sender: FDA-Public Use
  Company Number: US-ELI_LILLY_AND_COMPANY-US201012003324

PATIENT
  Sex: Male
  Weight: 71.655 kg

DRUGS (2)
  1. STRATTERA [Suspect]
     Dosage: 80 MG, DAILY (1/D)
     Route: 048
     Dates: start: 20101124, end: 20101209
  2. STRATTERA [Suspect]
     Indication: ATTENTION DEFICIT/HYPERACTIVITY DISORDER
     Dosage: 40 MG, DAILY (1/D)
     Route: 048
     Dates: start: 20101117, end: 20101123

REACTIONS (7)
  - SUICIDAL IDEATION [None]
  - ADVERSE EVENT [None]
  - WEIGHT DECREASED [None]
  - PERSONALITY CHANGE [None]
  - AMNESIA [None]
  - SYNCOPE [None]
  - DIZZINESS [None]
